FAERS Safety Report 9827216 (Version 1)
Quarter: 2014Q1

REPORT INFORMATION
  Report Type: Spontaneous
  Country: US (occurrence: US)
  Receive Date: 20140117
  Receipt Date: 20140117
  Transmission Date: 20141002
  Serious: Yes (Hospitalization)
  Sender: FDA-Public Use
  Company Number: US-GLAXOSMITHKLINE-A1047945A

PATIENT
  Age: 61 Year
  Sex: Female

DRUGS (1)
  1. PROMACTA [Suspect]
     Indication: IMMUNE THROMBOCYTOPENIC PURPURA
     Dosage: 25MG PER DAY
     Route: 048

REACTIONS (10)
  - Investigation [Unknown]
  - Coma [Unknown]
  - Platelet count decreased [Recovering/Resolving]
  - Amnesia [Unknown]
  - Blood glucose decreased [Unknown]
  - Fall [Unknown]
  - Immune system disorder [Unknown]
  - Nasopharyngitis [Unknown]
  - Sinusitis [Unknown]
  - Influenza [Unknown]
